FAERS Safety Report 23771826 (Version 1)
Quarter: 2024Q2

REPORT INFORMATION
  Report Type: Spontaneous
  Country: CN (occurrence: CN)
  Receive Date: 20240423
  Receipt Date: 20240423
  Transmission Date: 20240715
  Serious: Yes (Other)
  Sender: FDA-Public Use
  Company Number: CN-002147023-NVSC2024CN083424

PATIENT
  Age: 51 Year
  Sex: Female

DRUGS (2)
  1. DEXAMETHASONE\TOBRAMYCIN [Suspect]
     Active Substance: DEXAMETHASONE\TOBRAMYCIN
     Indication: Iridocyclitis
     Dosage: 0.1 ML, QD
     Route: 047
     Dates: start: 20240412, end: 20240414
  2. PREDNISOLONE ACETATE [Suspect]
     Active Substance: PREDNISOLONE ACETATE
     Indication: Iridocyclitis
     Dosage: 0.1 ML, TID
     Route: 047
     Dates: start: 20240412, end: 20240414

REACTIONS (1)
  - Corneal exfoliation [Recovering/Resolving]

NARRATIVE: CASE EVENT DATE: 20240414
